FAERS Safety Report 8544247-1 (Version None)
Quarter: 2012Q3

REPORT INFORMATION
  Report Type: 
  Country: None (occurrence: None)
  Receive Date: 20120727
  Receipt Date: 20120720
  Transmission Date: 20120928
  Serious: Yes (Other)
  Sender: FDA-Public Use
  Company Number: AU-ABBOTT-12P-008-0892631-00

PATIENT
  Age: 64 Year
  Sex: Female

DRUGS (3)
  1. VALIUM [Concomitant]
     Indication: MUSCLE SPASMS
  2. LIPIDIL [Suspect]
     Indication: BLOOD TRIGLYCERIDES INCREASED
     Dates: start: 20111201, end: 20120105
  3. UNKNOWN MEDICATIONS [Concomitant]
     Indication: PRODUCT USED FOR UNKNOWN INDICATION

REACTIONS (10)
  - MUSCLE SPASMS [None]
  - MOVEMENT DISORDER [None]
  - GAIT DISTURBANCE [None]
  - CHEST PAIN [None]
  - MUSCLE DISORDER [None]
  - ACTIVITIES OF DAILY LIVING IMPAIRED [None]
  - PAIN [None]
  - BURSITIS [None]
  - PAIN IN EXTREMITY [None]
  - SUICIDAL IDEATION [None]
